FAERS Safety Report 17666356 (Version 2)
Quarter: 2020Q2

REPORT INFORMATION
  Report Type: Spontaneous
  Country: CA (occurrence: CA)
  Receive Date: 20200414
  Receipt Date: 20200513
  Transmission Date: 20200713
  Serious: Yes (Death, Other)
  Sender: FDA-Public Use
  Company Number: CA-SHIRE-CA202013277

PATIENT

DRUGS (1)
  1. REVESTIVE [Suspect]
     Active Substance: TEDUGLUTIDE
     Indication: PRODUCT USED FOR UNKNOWN INDICATION
     Dosage: 0.05 MILLIGRAM/KILOGRAM, 1X/DAY:QD
     Route: 065

REACTIONS (1)
  - Death [Fatal]
